FAERS Safety Report 20249340 (Version 1)
Quarter: 2021Q4

REPORT INFORMATION
  Report Type: Spontaneous
  Country: US (occurrence: None)
  Receive Date: 20211229
  Receipt Date: 20211229
  Transmission Date: 20220303
  Serious: Yes (Life-Threatening, Hospitalization)
  Sender: FDA-Public Use
  Company Number: None

PATIENT
  Age: 29 Year
  Sex: Female
  Weight: 83.9 kg

DRUGS (1)
  1. BAMLANIVIMAB\ETESEVIMAB [Suspect]
     Active Substance: BAMLANIVIMAB\ETESEVIMAB
     Indication: Coronavirus infection
     Dosage: OTHER FREQUENCY : ONCE;?
     Route: 041
     Dates: start: 20211228, end: 20211228

REACTIONS (6)
  - Maternal exposure during pregnancy [None]
  - Infusion related reaction [None]
  - Chest pain [None]
  - Dyspnoea [None]
  - Hypoxia [None]
  - Foetal heart rate decreased [None]

NARRATIVE: CASE EVENT DATE: 20211228
